FAERS Safety Report 4349510-6 (Version None)
Quarter: 2004Q2

REPORT INFORMATION
  Report Type: 
  Country: None (occurrence: None)
  Receive Date: 20040426
  Receipt Date: 20040415
  Transmission Date: 20050107
  Serious: Yes (Hospitalization)
  Sender: FDA-Public Use
  Company Number: US-JNJFOC-20040403733

PATIENT
  Age: 46 Year
  Sex: Female

DRUGS (3)
  1. DURAGESIC [Suspect]
     Indication: PAIN
     Dosage: 25 UG/HR, 1 IN 72 HOUR, TRANSDERMAL
     Route: 062
     Dates: start: 20040402
  2. VICODIN [Concomitant]
  3. DIOVAN [Concomitant]

REACTIONS (2)
  - BLOOD PRESSURE INCREASED [None]
  - INADEQUATE ANALGESIA [None]
